FAERS Safety Report 6703875-6 (Version None)
Quarter: 2010Q2

REPORT INFORMATION
  Report Type: 
  Country: None (occurrence: None)
  Receive Date: 20100430
  Receipt Date: 20100426
  Transmission Date: 20101027
  Serious: Yes (Hospitalization)
  Sender: FDA-Public Use
  Company Number: IT-ROCHE-698063

PATIENT
  Sex: Male
  Weight: 80 kg

DRUGS (5)
  1. MYCOPHENOLATE MOFETIL [Suspect]
     Dosage: FREQUENCY: DAY
     Route: 048
     Dates: start: 20081128, end: 20081222
  2. TACROLIMUS [Concomitant]
  3. METHYLPREDNISOLONE [Concomitant]
  4. INSULINE [Concomitant]
  5. PREDNISONE [Concomitant]
     Route: 048

REACTIONS (3)
  - DIARRHOEA [None]
  - METABOLIC ACIDOSIS [None]
  - RENAL FAILURE ACUTE [None]
